FAERS Safety Report 22201978 (Version 1)
Quarter: 2023Q2

REPORT INFORMATION
  Report Type: Spontaneous
  Country: US (occurrence: None)
  Receive Date: 20230411
  Receipt Date: 20230411
  Transmission Date: 20230721
  Serious: No
  Sender: FDA-Public Use
  Company Number: None

PATIENT
  Sex: Female
  Weight: 58.06 kg

DRUGS (11)
  1. RETEVMO [Suspect]
     Active Substance: SELPERCATINIB
     Indication: Metastases to central nervous system
     Dosage: 160MG TWICE DAILY ORAL
     Route: 048
     Dates: start: 202208
  2. COLCHICINE [Concomitant]
  3. DICLOFENAC [Concomitant]
  4. DOCUSATE [Concomitant]
  5. IMODIUM A-D [Concomitant]
  6. MELATONIN [Concomitant]
     Active Substance: MELATONIN
  7. OXYCODONE [Concomitant]
  8. PERCOCET [Concomitant]
  9. SELENIUM SULFIDE [Concomitant]
  10. TYLENOL [Concomitant]
  11. VITAMIN D3 [Concomitant]
     Active Substance: CHOLECALCIFEROL

REACTIONS (1)
  - Therapeutic product effect incomplete [None]
